FAERS Safety Report 10436446 (Version 1)
Quarter: 2014Q3

REPORT INFORMATION
  Report Type: Spontaneous
  Country: US (occurrence: None)
  Receive Date: 20140905
  Receipt Date: 20140905
  Transmission Date: 20150326
  Serious: Yes (Hospitalization)
  Sender: FDA-Public Use
  Company Number: None

PATIENT
  Age: 59 Year
  Sex: Male
  Weight: 113.41 kg

DRUGS (7)
  1. TRICOR [Concomitant]
     Active Substance: FENOFIBRATE
  2. METFORMIN [Concomitant]
     Active Substance: METFORMIN HYDROCHLORIDE
  3. PROCARDIA [Concomitant]
     Active Substance: NIFEDIPINE
  4. LISINOPRIL. [Concomitant]
     Active Substance: LISINOPRIL
  5. INTRON A [Suspect]
     Active Substance: INTERFERON ALFA-2B
     Dosage: 201 MU
     Dates: end: 20140620
  6. ACETAMINOPHEN. [Concomitant]
     Active Substance: ACETAMINOPHEN
  7. LEXAPRO [Concomitant]
     Active Substance: ESCITALOPRAM OXALATE

REACTIONS (4)
  - Fatigue [None]
  - Blood triglycerides increased [None]
  - Musculoskeletal pain [None]
  - Bilirubin conjugated increased [None]

NARRATIVE: CASE EVENT DATE: 20140623
